FAERS Safety Report 5588381-7 (Version None)
Quarter: 2008Q1

REPORT INFORMATION
  Report Type: 
  Country: None (occurrence: None)
  Receive Date: 20080111
  Receipt Date: 20071127
  Transmission Date: 20080703
  Serious: Yes (Other)
  Sender: FDA-Public Use
  Company Number: A0690069A

PATIENT
  Age: 61 Year
  Sex: Female
  Weight: 59.1 kg

DRUGS (2)
  1. TYKERB [Suspect]
     Indication: BREAST CANCER
     Dosage: 1250MG PER DAY
     Route: 048
     Dates: start: 20070801
  2. LEVAQUIN [Concomitant]

REACTIONS (1)
  - RASH [None]
